FAERS Safety Report 14824270 (Version 1)
Quarter: 2018Q2

REPORT INFORMATION
  Report Type: Spontaneous
  Country: DE (occurrence: DE)
  Receive Date: 20180429
  Receipt Date: 20180429
  Transmission Date: 20180711
  Serious: Yes (Hospitalization)
  Sender: FDA-Public Use
  Company Number: DE-DEXPHARM-20180282

PATIENT
  Age: 78 Year
  Sex: Male

DRUGS (7)
  1. FINASTERIDE. [Concomitant]
     Active Substance: FINASTERIDE
     Dosage: 5 MG, 1-0-0-0
  2. AMLODIPINE [Concomitant]
     Active Substance: AMLODIPINE BESYLATE
     Dosage: 5 MG, 1-0-0-0
  3. RAMIPRIL. [Concomitant]
     Active Substance: RAMIPRIL
     Dosage: 5 MG, 1-0-0-0
  4. AMOXICILLIN. [Suspect]
     Active Substance: AMOXICILLIN
  5. OMEPRAZOLE. [Suspect]
     Active Substance: OMEPRAZOLE
     Dosage: 1-0-1-0
  6. CLARITHROMYCIN. [Suspect]
     Active Substance: CLARITHROMYCIN
  7. CONCOR 10MG [Concomitant]

REACTIONS (3)
  - Abdominal pain lower [Unknown]
  - Pain [Unknown]
  - Abdominal pain upper [Unknown]
